FAERS Safety Report 6177586-2 (Version None)
Quarter: 2009Q2

REPORT INFORMATION
  Report Type: 
  Country: None (occurrence: None)
  Receive Date: 20090504
  Receipt Date: 20090423
  Transmission Date: 20091009
  Serious: Yes (Hospitalization, Other)
  Sender: FDA-Public Use
  Company Number: US-PFIZER INC-2009197279

PATIENT
  Sex: Male
  Weight: 89.9 kg

DRUGS (3)
  1. SUTENT [Suspect]
     Indication: METASTATIC MALIGNANT MELANOMA
     Dosage: 37.5 MG, 1X/DAY
     Route: 048
     Dates: start: 20090316, end: 20090413
  2. AVODART [Concomitant]
     Dosage: 0.5 MG, 1X/DAY
     Route: 048
  3. TERAZOSIN [Concomitant]
     Dosage: 5 MG, 1X/DAY
     Route: 048

REACTIONS (8)
  - ABDOMINAL PAIN [None]
  - DIARRHOEA [None]
  - HAEMATEMESIS [None]
  - HIATUS HERNIA [None]
  - NAUSEA [None]
  - NEUTROPHIL COUNT DECREASED [None]
  - SINUSITIS [None]
  - WHITE BLOOD CELL COUNT DECREASED [None]
